FAERS Safety Report 17859062 (Version 2)
Quarter: 2021Q1

REPORT INFORMATION
  Report Type: Spontaneous
  Country: US (occurrence: US)
  Receive Date: 20200604
  Receipt Date: 20210120
  Transmission Date: 20210419
  Serious: No
  Sender: FDA-Public Use
  Company Number: US-ELI_LILLY_AND_COMPANY-US202005001978

PATIENT
  Age: 50 Year
  Sex: Female

DRUGS (5)
  1. TALTZ [Suspect]
     Active Substance: IXEKIZUMAB
     Dosage: 80 MG, OTHER(EVERY 4 WEEKS)
     Route: 058
  2. TALTZ [Suspect]
     Active Substance: IXEKIZUMAB
     Dosage: 160 MG, SINGLE(RESTARTED)
     Route: 058
     Dates: start: 20200625
  3. TALTZ [Suspect]
     Active Substance: IXEKIZUMAB
     Indication: PSORIASIS
     Dosage: 160 MG, SINGLE
     Route: 058
     Dates: start: 20200214
  4. TALTZ [Suspect]
     Active Substance: IXEKIZUMAB
     Indication: PSORIATIC ARTHROPATHY
     Dosage: 80 MG, OTHER(EVERY 2 WEEKS)
     Route: 058
     Dates: end: 20200325
  5. TALTZ [Suspect]
     Active Substance: IXEKIZUMAB
     Dosage: 80 MG, OTHER(EVERY 2 WEEKS)
     Route: 058
     Dates: end: 202009

REACTIONS (12)
  - Amnesia [Unknown]
  - SARS-CoV-2 test positive [Recovered/Resolved]
  - Contusion [Unknown]
  - Abdominal pain [Unknown]
  - Pain [Unknown]
  - Myalgia [Unknown]
  - Arthralgia [Unknown]
  - Alopecia [Unknown]
  - Rash [Recovered/Resolved]
  - Psoriatic arthropathy [Unknown]
  - Skin discolouration [Unknown]
  - Oropharyngeal pain [Unknown]

NARRATIVE: CASE EVENT DATE: 202004
